FAERS Safety Report 26067884 (Version 1)
Quarter: 2025Q4

REPORT INFORMATION
  Report Type: Spontaneous
  Country: EU (occurrence: EU)
  Receive Date: 20251120
  Receipt Date: 20251120
  Transmission Date: 20260118
  Serious: Yes (Other)
  Sender: AMGEN
  Company Number: None

PATIENT
  Age: 72 Year
  Sex: Female
  Weight: 55 kg

DRUGS (4)
  1. AFLIBERCEPT [Suspect]
     Active Substance: AFLIBERCEPT
     Indication: Choroidal neovascularisation
     Dosage: 2MG OD
     Route: 065
     Dates: start: 20240618
  2. TIOTROPIUM [Concomitant]
     Active Substance: TIOTROPIUM
     Dosage: NEBULIZER FLUID, 2,5 MUG/DOSE (MICROGRAM PER DOSE)
     Route: 065
  3. VERAPAMIL [Concomitant]
     Active Substance: VERAPAMIL HYDROCHLORIDE
     Dosage: TABLET WITH CONTROLLED RELEASE, 240 MG (MILLIGRAM)
     Route: 065
  4. DABIGATRAN [Concomitant]
     Active Substance: DABIGATRAN
     Dosage: CAPSULE, 110 MG (MILLIGRAM)
     Route: 065

REACTIONS (1)
  - Uveitis [Unknown]
